FAERS Safety Report 13685389 (Version 2)
Quarter: 2017Q3

REPORT INFORMATION
  Report Type: Spontaneous
  Country: US (occurrence: US)
  Receive Date: 20170623
  Receipt Date: 20170711
  Transmission Date: 20171127
  Serious: Yes (Other)
  Sender: FDA-Public Use
  Company Number: US-BAYER-2017-114432

PATIENT
  Age: 63 Year
  Sex: Female
  Weight: 108.84 kg

DRUGS (2)
  1. BAYER ASPIRIN 500 MG [Suspect]
     Active Substance: ASPIRIN
     Indication: ANTIPLATELET THERAPY
  2. BAYER ASPIRIN 500 MG [Suspect]
     Active Substance: ASPIRIN
     Indication: ARTHRITIS
     Dosage: UNK, EVEY 6 HOURS
     Route: 048
     Dates: end: 20170613

REACTIONS (1)
  - Drug withdrawal syndrome [Unknown]
